FAERS Safety Report 17699966 (Version 1)
Quarter: 2020Q2

REPORT INFORMATION
  Report Type: Spontaneous
  Country: US (occurrence: US)
  Receive Date: 20200423
  Receipt Date: 20200423
  Transmission Date: 20200714
  Serious: Yes (Other)
  Sender: FDA-Public Use
  Company Number: US-ASTELLAS-2019US021245

PATIENT
  Age: 66 Year
  Sex: Female

DRUGS (8)
  1. LEXISCAN [Suspect]
     Active Substance: REGADENOSON
     Indication: ANGINA PECTORIS
  2. LEXISCAN [Suspect]
     Active Substance: REGADENOSON
     Indication: SCAN MYOCARDIAL PERFUSION
     Dosage: 0.08 MG/ML (0.4 MG/5 ML), UNKNOWN FREQ.
     Route: 065
     Dates: start: 20190514
  3. LEXISCAN [Suspect]
     Active Substance: REGADENOSON
     Indication: SCAN MYOCARDIAL PERFUSION
     Dosage: 0.08 MG/ML (0.4 MG/5 ML), UNKNOWN FREQ.
     Route: 065
     Dates: start: 20190514
  4. LEXISCAN [Suspect]
     Active Substance: REGADENOSON
     Indication: SCAN MYOCARDIAL PERFUSION
     Dosage: 0.08 MG/ML (0.4 MG/5 ML), UNKNOWN FREQ.
     Route: 065
     Dates: start: 20190514
  5. LEXISCAN [Suspect]
     Active Substance: REGADENOSON
     Indication: ANGINA PECTORIS
  6. LEXISCAN [Suspect]
     Active Substance: REGADENOSON
     Indication: ANGINA PECTORIS
  7. LEXISCAN [Suspect]
     Active Substance: REGADENOSON
     Indication: SCAN MYOCARDIAL PERFUSION
     Dosage: 0.08 MG/ML (0.4 MG/5 ML), UNKNOWN FREQ.
     Route: 065
     Dates: start: 20190514
  8. LEXISCAN [Suspect]
     Active Substance: REGADENOSON
     Indication: ANGINA PECTORIS

REACTIONS (3)
  - Loss of consciousness [Recovered/Resolved]
  - Discomfort [Recovered/Resolved]
  - Sinus arrest [Recovered/Resolved]

NARRATIVE: CASE EVENT DATE: 20190514
